FAERS Safety Report 8906282 (Version 1)
Quarter: 2012Q4

REPORT INFORMATION
  Report Type: Spontaneous
  Country: US (occurrence: None)
  Receive Date: 20121112
  Receipt Date: 20121112
  Transmission Date: 20130627
  Serious: Yes (Life-Threatening)
  Sender: FDA-Public Use
  Company Number: None

PATIENT
  Age: 38 Year
  Sex: Female
  Weight: 52.62 kg

DRUGS (1)
  1. TRAMADOL [Suspect]
     Indication: HEAD INJURY
     Route: 048
     Dates: start: 20121108, end: 20121108

REACTIONS (11)
  - Dizziness [None]
  - Nausea [None]
  - Vomiting [None]
  - Diarrhoea [None]
  - Dyspnoea [None]
  - Fall [None]
  - Hyperhidrosis [None]
  - Abdominal pain [None]
  - Feeling cold [None]
  - Pallor [None]
  - Miosis [None]
